FAERS Safety Report 25183278 (Version 1)
Quarter: 2025Q2

REPORT INFORMATION
  Report Type: Spontaneous
  Country: US (occurrence: None)
  Receive Date: 20250409
  Receipt Date: 20250409
  Transmission Date: 20250717
  Serious: No
  Sender: FDA-CTU
  Company Number: None

PATIENT
  Age: 76 Year
  Sex: Male
  Weight: 110 kg

DRUGS (1)
  1. LISINOPRIL [Suspect]
     Active Substance: LISINOPRIL
     Indication: Hypertension
     Dosage: 1.00 UNK - UNKNOWN DILY ORAL ?
     Route: 048
     Dates: start: 20241206, end: 20250105

REACTIONS (2)
  - Angioedema [None]
  - Food allergy [None]

NARRATIVE: CASE EVENT DATE: 20250105
